FAERS Safety Report 9203691 (Version 1)
Quarter: 2013Q1

REPORT INFORMATION
  Report Type: Spontaneous
  Country: US (occurrence: None)
  Receive Date: 20120709
  Receipt Date: 20120709
  Transmission Date: 20140127
  Serious: No
  Sender: FDA-Public Use
  Company Number: 2012HGS-003688

PATIENT
  Age: 24 Year
  Sex: Female
  Weight: 49.9 kg

DRUGS (7)
  1. BENLYSTA [Suspect]
     Indication: SYSTEMIC LUPUS ERYTHEMATOSUS
     Dosage: 1 IN 14 D
     Route: 041
     Dates: start: 20120511
  2. CELLCEPT (MYCOPHENOLATE MOFETIL) (MYCOPHENOLATE MOFETIL) [Concomitant]
  3. PLAQUENIL (HYDROXYCHLOROQUINE SULFATE) (HYDROXYCHLOROQUINE SULFATE) [Concomitant]
  4. PREDNISONE (PREDNISONE) (PREDNISONE) [Concomitant]
  5. LASIX (FUROSEMIDE) (FUROSEMIDE) [Concomitant]
  6. POTASSIUM (POTASSIUM) (POTASSIUM) [Concomitant]
  7. VITAMIN D (ERGOCALCIFEROL) (ERGOCALCIFEROL) [Concomitant]

REACTIONS (4)
  - Blood urine present [None]
  - Urinary tract infection [None]
  - Dysuria [None]
  - Pollakiuria [None]
